FAERS Safety Report 24211522 (Version 2)
Quarter: 2024Q3

REPORT INFORMATION
  Report Type: Spontaneous
  Country: US (occurrence: US)
  Receive Date: 20240814
  Receipt Date: 20240926
  Transmission Date: 20241016
  Serious: Yes (Other)
  Sender: BRISTOL MYERS SQUIBB
  Company Number: US-BRISTOL-MYERS SQUIBB COMPANY-2024-126443

PATIENT
  Age: 62 Year
  Sex: Female

DRUGS (2)
  1. SPRYCEL [Suspect]
     Active Substance: DASATINIB
     Indication: Chronic myeloid leukaemia
     Route: 048
     Dates: start: 201704
  2. SPRYCEL [Suspect]
     Active Substance: DASATINIB
     Indication: Chronic myeloid leukaemia (in remission)
     Route: 048
     Dates: start: 202009

REACTIONS (10)
  - Skin swelling [Unknown]
  - Alopecia [Unknown]
  - Dyspnoea [Unknown]
  - Pericardial effusion [Unknown]
  - COVID-19 [Unknown]
  - Peripheral swelling [Unknown]
  - Arterial occlusive disease [Unknown]
  - Condition aggravated [Unknown]
  - Abdominal discomfort [Unknown]
  - Intestinal haemorrhage [Unknown]
